FAERS Safety Report 4293839-7 (Version None)
Quarter: 2004Q1

REPORT INFORMATION
  Report Type: 
  Country: None (occurrence: None)
  Receive Date: 20040212
  Receipt Date: 20030902
  Transmission Date: 20041129
  Serious: Yes (Other)
  Sender: FDA-Public Use
  Company Number: DE-BRISTOL-MYERS SQUIBB COMPANY-12370649

PATIENT
  Age: 40 Year
  Sex: Male
  Weight: 85 kg

DRUGS (5)
  1. ATAZANAVIR [Suspect]
     Indication: HIV INFECTION
     Dosage: INTERRUPTED ON 08-AUG-2003.  RESTARTED ON 400 MG/DAY ON 12-AUG-2003.
     Route: 048
     Dates: start: 20030611
  2. DIDANOSINE [Suspect]
     Indication: HIV INFECTION
     Dates: start: 20030611, end: 20030808
  3. EPIVIR [Suspect]
     Indication: HIV INFECTION
     Dates: start: 19981214, end: 20030808
  4. RITONAVIR [Suspect]
     Indication: HIV INFECTION
     Dates: start: 20030611, end: 20030808
  5. VIREAD [Suspect]
     Indication: HIV INFECTION
     Dates: start: 20010615, end: 20030808

REACTIONS (2)
  - BLOOD BILIRUBIN INCREASED [None]
  - OCULAR ICTERUS [None]
